FAERS Safety Report 7969899-6 (Version None)
Quarter: 2011Q4

REPORT INFORMATION
  Report Type: 
  Country: None (occurrence: None)
  Receive Date: 20111212
  Receipt Date: 20111201
  Transmission Date: 20120403
  Serious: Yes (Other)
  Sender: FDA-Public Use
  Company Number: IN-GENZYME-POMP-1001891

PATIENT
  Sex: Female
  Weight: 5.21 kg

DRUGS (4)
  1. MYOZYME [Suspect]
     Indication: GLYCOGEN STORAGE DISEASE TYPE II
     Dosage: 100 MG, UNK
     Dates: start: 20111029
  2. RITUXIMAB [Suspect]
     Dosage: 75 MG, ONCE
     Dates: start: 20111103, end: 20111103
  3. IMMUNE GLOBULIN INTRAVENOUS (HUMAN) [Concomitant]
     Indication: INFECTION
     Dosage: 2.5 G, UNK
     Dates: start: 20111104, end: 20111104
  4. RITUXIMAB [Suspect]
     Indication: IMMUNOSUPPRESSION
     Dosage: 75 MG, ONCE
     Dates: start: 20111028, end: 20111028

REACTIONS (3)
  - PYREXIA [None]
  - PNEUMOTHORAX [None]
  - DYSPNOEA [None]
